FAERS Safety Report 10074521 (Version 1)
Quarter: 2014Q2

REPORT INFORMATION
  Report Type: Spontaneous
  Country: US (occurrence: US)
  Receive Date: 20140411
  Receipt Date: 20140411
  Transmission Date: 20141212
  Serious: No
  Sender: FDA-Public Use
  Company Number: US-SA-2013SA123001

PATIENT
  Age: 80 Year
  Sex: Male

DRUGS (3)
  1. ALLEGRA D [Suspect]
     Indication: HYPERSENSITIVITY
     Route: 048
     Dates: start: 20131117
  2. ALLEGRA D [Suspect]
     Indication: UPPER RESPIRATORY TRACT CONGESTION
     Route: 048
     Dates: start: 20131117
  3. ALLEGRA D [Suspect]
     Indication: LACRIMATION INCREASED
     Route: 048
     Dates: start: 20131117

REACTIONS (1)
  - Drug ineffective [Unknown]
